FAERS Safety Report 18770525 (Version 1)
Quarter: 2021Q1

REPORT INFORMATION
  Report Type: Other
  Country: FR (occurrence: FR)
  Receive Date: 20210122
  Receipt Date: 20210122
  Transmission Date: 20210419
  Serious: Yes (Hospitalization)
  Sender: FDA-Public Use
  Company Number: FR-APOTEX-2021AP001570

PATIENT
  Age: 56 Year
  Sex: Male

DRUGS (2)
  1. MEBEVERINE [Suspect]
     Active Substance: MEBEVERINE
     Indication: DIARRHOEA
     Dosage: UNK
     Route: 048
     Dates: start: 202007
  2. DEROXAT [Suspect]
     Active Substance: PAROXETINE HYDROCHLORIDE
     Indication: DEPRESSION
     Dosage: UNK
     Route: 048
     Dates: start: 202007, end: 202008

REACTIONS (2)
  - Fall [Recovered/Resolved]
  - Tremor [Recovered/Resolved]

NARRATIVE: CASE EVENT DATE: 202007
